FAERS Safety Report 25450789 (Version 1)
Quarter: 2025Q2

REPORT INFORMATION
  Report Type: Spontaneous
  Country: IR (occurrence: IR)
  Receive Date: 20250618
  Receipt Date: 20250618
  Transmission Date: 20250717
  Serious: Yes (Hospitalization, Other)
  Sender: Norvium Bioscience
  Company Number: IR-Norvium Bioscience LLC-080279

PATIENT
  Age: 49 Year
  Sex: Male
  Weight: 85 kg

DRUGS (7)
  1. LINEZOLID [Interacting]
     Active Substance: LINEZOLID
     Indication: COVID-19
  2. FENTANYL [Interacting]
     Active Substance: FENTANYL
     Indication: Sedation
  3. CEFEPIME [Concomitant]
     Active Substance: CEFEPIME HYDROCHLORIDE
     Indication: COVID-19
  4. REMDESIVIR [Concomitant]
     Active Substance: REMDESIVIR
     Indication: COVID-19
  5. METHYLPREDNISOLONE [Concomitant]
     Active Substance: METHYLPREDNISOLONE
     Indication: Product used for unknown indication
  6. FENTANYL [Interacting]
     Active Substance: FENTANYL
     Indication: Analgesic therapy
  7. REMDESIVIR [Concomitant]
     Active Substance: REMDESIVIR
     Indication: COVID-19

REACTIONS (3)
  - Serotonin syndrome [Recovering/Resolving]
  - Hypertensive crisis [Recovering/Resolving]
  - Drug interaction [Unknown]
